FAERS Safety Report 23542790 (Version 1)
Quarter: 2024Q1

REPORT INFORMATION
  Report Type: Spontaneous
  Country: SG (occurrence: SG)
  Receive Date: 20240220
  Receipt Date: 20240220
  Transmission Date: 20240409
  Serious: Yes (Hospitalization, Other)
  Sender: FDA-Public Use
  Company Number: SG-HALEON-SGCH2024APC005321

PATIENT

DRUGS (1)
  1. IBUPROFEN [Suspect]
     Active Substance: IBUPROFEN
     Indication: Headache
     Dosage: UNK

REACTIONS (12)
  - Genital ulceration [Recovered/Resolved]
  - Penile swelling [Recovered/Resolved]
  - Penile pain [Recovered/Resolved]
  - Phimosis [Recovered/Resolved]
  - Penile discharge [Recovered/Resolved]
  - Urinary retention [Recovered/Resolved]
  - Penile blister [Recovered/Resolved]
  - Condition aggravated [Recovered/Resolved]
  - Fixed eruption [Recovered/Resolved]
  - Mouth ulceration [Recovered/Resolved]
  - Dysuria [Recovered/Resolved]
  - Drug hypersensitivity [Recovered/Resolved]
